FAERS Safety Report 6913458-0 (Version None)
Quarter: 2010Q3

REPORT INFORMATION
  Report Type: 
  Country: None (occurrence: None)
  Receive Date: 20100804
  Receipt Date: 20100804
  Transmission Date: 20110219
  Serious: Yes (Life-Threatening, Disabling, Other)
  Sender: FDA-Public Use
  Company Number: None

PATIENT
  Age: 91 Year
  Sex: Female
  Weight: 52.1637 kg

DRUGS (1)
  1. CITALOPRAM HYDROBROMIDE [Suspect]
     Indication: DEPRESSION
     Dosage: 20MG 1 DAY MOUTH
     Route: 048
     Dates: start: 20100629, end: 20100719

REACTIONS (12)
  - AMNESIA [None]
  - ASTHENIA [None]
  - CONFUSIONAL STATE [None]
  - DISTURBANCE IN ATTENTION [None]
  - DIZZINESS [None]
  - DRY MOUTH [None]
  - HALLUCINATION [None]
  - HOSTILITY [None]
  - IRRITABILITY [None]
  - PALPITATIONS [None]
  - PRURITUS GENERALISED [None]
  - SWOLLEN TONGUE [None]
